FAERS Safety Report 4414144-1 (Version None)
Quarter: 2004Q3

REPORT INFORMATION
  Report Type: 
  Country: None (occurrence: None)
  Receive Date: 20040729
  Receipt Date: 20030818
  Transmission Date: 20050211
  Serious: Yes (Death)
  Sender: FDA-Public Use
  Company Number: M2004-0910

PATIENT
  Age: 79 Year

DRUGS (4)
  1. FUROSEMIDE [Suspect]
  2. NEORAL [Suspect]
     Indication: RENAL TRANSPLANT
     Dates: start: 19930101
  3. DIGOXIN [Suspect]
     Dosage: UNKNOWN
     Route: 065
  4. INSULIN [Suspect]
     Dosage: UNKNOWN
     Route: 065

REACTIONS (10)
  - ALANINE AMINOTRANSFERASE INCREASED [None]
  - ASPARTATE AMINOTRANSFERASE INCREASED [None]
  - BLOOD ALBUMIN DECREASED [None]
  - BLOOD BILIRUBIN INCREASED [None]
  - CARDIAC ARREST [None]
  - CEREBROVASCULAR ACCIDENT [None]
  - HEPATIC FUNCTION ABNORMAL [None]
  - INTERNATIONAL NORMALISED RATIO INCREASED [None]
  - JAUNDICE [None]
  - MYOCARDIAL INFARCTION [None]
